FAERS Safety Report 5476784-0 (Version None)
Quarter: 2007Q4

REPORT INFORMATION
  Report Type: 
  Country: None (occurrence: None)
  Receive Date: 20071003
  Receipt Date: 20071003
  Transmission Date: 20080405
  Serious: Yes (Other)
  Sender: FDA-Public Use
  Company Number: None

PATIENT
  Sex: Female

DRUGS (1)
  1. SERTRALINE [Suspect]
     Indication: MAJOR DEPRESSION
     Dosage: 100 MG 1 PO QHS
     Route: 048

REACTIONS (3)
  - DRUG INTOLERANCE [None]
  - NAUSEA [None]
  - VOMITING [None]
